FAERS Safety Report 9664575 (Version 2)
Quarter: 2013Q4

REPORT INFORMATION
  Report Type: Spontaneous
  Country: GB (occurrence: GB)
  Receive Date: 20131101
  Receipt Date: 20131101
  Transmission Date: 20140711
  Serious: Yes (Life-Threatening, Hospitalization, Other)
  Sender: FDA-Public Use
  Company Number: GB-TEVA-416114ISR

PATIENT
  Age: 52 Year
  Sex: Female
  Weight: 72 kg

DRUGS (3)
  1. METHOTREXATE [Suspect]
     Indication: PSORIASIS
     Dates: start: 20130530, end: 20130603
  2. RED CLOVER [Interacting]
     Indication: MENOPAUSAL SYMPTOMS
     Route: 048
     Dates: start: 20130529, end: 20130602
  3. CITALOPRAM [Concomitant]

REACTIONS (3)
  - Drug interaction [Unknown]
  - Vomiting [Recovered/Resolved]
  - Abdominal pain upper [Recovered/Resolved]
